FAERS Safety Report 19614842 (Version 1)
Quarter: 2021Q3

REPORT INFORMATION
  Report Type: Spontaneous
  Country: CN (occurrence: CN)
  Receive Date: 20210727
  Receipt Date: 20210727
  Transmission Date: 20211014
  Serious: Yes (Hospitalization)
  Sender: FDA-Public Use
  Company Number: CN-BAXTER-2021BAX021886

PATIENT
  Age: 51 Year
  Sex: Male

DRUGS (17)
  1. 5% GLUCOSE  INJECTION [Suspect]
     Active Substance: DEXTROSE
     Dosage: PIRARUBICIN HYDROCHLORIDE + 5% GS, DOSE REINTRODUCED
     Route: 041
     Dates: start: 202107
  2. 0.9% SODIUM CHLORIDE INJECTION [Suspect]
     Active Substance: SODIUM CHLORIDE
     Dosage: RITUXIMAB  + 0.9% NS, DOSE REINTRODUCED
     Route: 041
     Dates: start: 202107
  3. ENDOXAN [Suspect]
     Active Substance: CYCLOPHOSPHAMIDE
     Indication: NON-HODGKIN^S LYMPHOMA
     Dosage: ENDOXAN 1.2G + 0.9% NS 100ML D1, R?CHOP REGIMEN
     Route: 041
     Dates: start: 20210630, end: 20210630
  4. 0.9% SODIUM CHLORIDE INJECTION [Suspect]
     Active Substance: SODIUM CHLORIDE
     Dosage: ENDOXAN 1.2G + 0.9% NS 100ML D1, R?CHOP REGIMEN
     Route: 041
     Dates: start: 20210630, end: 20210630
  5. PIRARUBICIN HYDROCHLORIDE [Suspect]
     Active Substance: PIRARUBICIN HYDROCHLORIDE
     Indication: NON-HODGKIN^S LYMPHOMA
     Dosage: PIRARUBICIN HYDROCHLORIDE 60MG + 5% GS 60ML D1, R?CHOP REGIMEN
     Route: 041
     Dates: start: 20210630, end: 20210630
  6. MEROHUA [Suspect]
     Active Substance: RITUXIMAB
     Dosage: MEROHUA  + 0.9% NS, DOSE REINTRODUCED
     Route: 041
     Dates: start: 202107
  7. VINCRISTINE SULFATE. [Suspect]
     Active Substance: VINCRISTINE SULFATE
     Indication: NON-HODGKIN^S LYMPHOMA
     Dosage: VINCRISTINE SULFATE 2MG 0.9% + NS 20ML D1, R?CHOP REGIMEN
     Route: 042
     Dates: start: 20210630, end: 20210630
  8. PREDNISONE. [Suspect]
     Active Substance: PREDNISONE
     Indication: NON-HODGKIN^S LYMPHOMA
     Dosage: R?CHOP REGIMEN
     Route: 065
     Dates: start: 202106
  9. 0.9% SODIUM CHLORIDE INJECTION [Suspect]
     Active Substance: SODIUM CHLORIDE
     Indication: MEDICATION DILUTION
     Dosage: RITUXIMAB 600MG + 0.9% NS 600ML D0, R?CHOP REGIMEN
     Route: 041
     Dates: start: 20210629, end: 20210629
  10. 0.9% SODIUM CHLORIDE INJECTION [Suspect]
     Active Substance: SODIUM CHLORIDE
     Dosage: VINCRISTINE SULFATE 2MG + 0.9% NS 20ML D1, R?CHOP REGIMEN
     Route: 042
     Dates: start: 20210630, end: 20210630
  11. PIRARUBICIN HYDROCHLORIDE [Suspect]
     Active Substance: PIRARUBICIN HYDROCHLORIDE
     Dosage: PIRARUBICIN HYDROCHLORIDE + 5% GS, DOSE REINTRODUCED
     Route: 041
     Dates: start: 202107
  12. ENDOXAN [Suspect]
     Active Substance: CYCLOPHOSPHAMIDE
     Dosage: ENDOXAN + 0.9% NS, DOSE REINTRODUCED
     Route: 041
     Dates: start: 202107
  13. 0.9% SODIUM CHLORIDE INJECTION [Suspect]
     Active Substance: SODIUM CHLORIDE
     Dosage: ENDOXAN + 0.9% NS, DOSE REINTRODUCED
     Route: 041
     Dates: start: 202107
  14. VINCRISTINE SULFATE. [Suspect]
     Active Substance: VINCRISTINE SULFATE
     Dosage: VINCRISTINE SULFATE + 0.9% NS, DOSE REINTRODUCED
     Route: 042
     Dates: start: 202107
  15. 0.9% SODIUM CHLORIDE INJECTION [Suspect]
     Active Substance: SODIUM CHLORIDE
     Dosage: VINCRISTINE SULFATE  + 0.9% NS,  DOSE REINTRODUCED
     Route: 042
     Dates: start: 202107
  16. 5% GLUCOSE  INJECTION [Suspect]
     Active Substance: DEXTROSE
     Indication: MEDICATION DILUTION
     Dosage: PIRARUBICIN HYDROCHLORIDE 60MG + 5% GS 60ML D1, R?CHOP REGIMEN
     Route: 041
     Dates: start: 20210630, end: 20210630
  17. MEROHUA [Suspect]
     Active Substance: RITUXIMAB
     Indication: NON-HODGKIN^S LYMPHOMA
     Dosage: MEROHUA 600MG + 0.9% NS 600ML D0, R?CHOP REGIMEN
     Route: 041
     Dates: start: 20210629, end: 20210629

REACTIONS (1)
  - Myelosuppression [Recovering/Resolving]

NARRATIVE: CASE EVENT DATE: 20210701
